FAERS Safety Report 7331395-7 (Version None)
Quarter: 2011Q1

REPORT INFORMATION
  Report Type: 
  Country: None (occurrence: None)
  Receive Date: 20110228
  Receipt Date: 20110228
  Transmission Date: 20110831
  Serious: Yes (Other)
  Sender: FDA-Public Use
  Company Number: None

PATIENT
  Age: 25 Year
  Sex: Female
  Weight: 65.7716 kg

DRUGS (1)
  1. POTASSIUM CITRATE ER [Suspect]
     Indication: CYSTINURIA
     Dosage: 2 TABS TWICE DAILY MOUTH
     Route: 048
     Dates: start: 20100401

REACTIONS (1)
  - ALOPECIA [None]
